FAERS Safety Report 4616044-0 (Version None)
Quarter: 2005Q1

REPORT INFORMATION
  Report Type: 
  Country: None (occurrence: None)
  Receive Date: 20050321
  Receipt Date: 20050310
  Transmission Date: 20050727
  Serious: Yes (Other)
  Sender: FDA-Public Use
  Company Number: 2005-BP-03712RO

PATIENT
  Age: 17 Year
  Sex: Male

DRUGS (3)
  1. CYCLOPHOSPHAMIDE [Suspect]
     Indication: STEM CELL TRANSPLANT
     Dosage: 50 MG/KG X 2 DOSES, IV
     Route: 042
  2. CARBOPLATIN [Suspect]
     Indication: STEM CELL TRANSPLANT
     Dosage: 300 MG/M2 X 4 DOSES, IV
     Route: 042
  3. ETOPOSIDE [Suspect]
     Indication: STEM CELL TRANSPLANT
     Dosage: 500 MG/M2 X 3 DOSES, IV
     Route: 042

REACTIONS (14)
  - ATRIAL NATRIURETIC PEPTIDE INCREASED [None]
  - BLOOD CREATINE PHOSPHOKINASE INCREASED [None]
  - BLOOD PRESSURE SYSTOLIC DECREASED [None]
  - BRAIN NATRIURETIC PEPTIDE INCREASED [None]
  - CARDIOMYOPATHY [None]
  - CARDIOTOXICITY [None]
  - DRUG TOXICITY [None]
  - DYSPNOEA [None]
  - ELECTROCARDIOGRAM LOW VOLTAGE [None]
  - PLEURAL EFFUSION [None]
  - SINUS TACHYCARDIA [None]
  - STEM CELL TRANSPLANT [None]
  - TROPONIN T INCREASED [None]
  - WEIGHT INCREASED [None]
